FAERS Safety Report 17578059 (Version 1)
Quarter: 2020Q1

REPORT INFORMATION
  Report Type: Spontaneous
  Country: CN (occurrence: CN)
  Receive Date: 20200324
  Receipt Date: 20200324
  Transmission Date: 20200409
  Serious: Yes (Other)
  Sender: FDA-Public Use
  Company Number: CN-BAYER-2020-045385

PATIENT
  Age: 54 Year
  Sex: Female

DRUGS (1)
  1. MIRENA [Suspect]
     Active Substance: LEVONORGESTREL
     Indication: UTERINE HAEMORRHAGE
     Dosage: 20 ?G PER DAY, CONTINUOUSLY
     Route: 015
     Dates: start: 2013

REACTIONS (9)
  - Device use issue [None]
  - Contraindicated device used [None]
  - Genital haemorrhage [None]
  - Abdominal pain [None]
  - Off label use of device [None]
  - Device expulsion [None]
  - Complication of device removal [None]
  - Device breakage [Not Recovered/Not Resolved]
  - Embedded device [None]

NARRATIVE: CASE EVENT DATE: 202003
